FAERS Safety Report 9196679 (Version 1)
Quarter: 2013Q1

REPORT INFORMATION
  Report Type: Spontaneous
  Country: US (occurrence: US)
  Receive Date: 20130328
  Receipt Date: 20130328
  Transmission Date: 20140127
  Serious: Yes (Other)
  Sender: FDA-Public Use
  Company Number: US-JNJFOC-20121200549

PATIENT
  Age: 83 Year
  Sex: Female
  Weight: 84.82 kg

DRUGS (10)
  1. XARELTO [Suspect]
     Indication: CEREBROVASCULAR ACCIDENT PROPHYLAXIS
     Route: 048
     Dates: start: 201211, end: 20121124
  2. XARELTO [Suspect]
     Indication: ATRIAL FIBRILLATION
     Route: 048
     Dates: start: 201211, end: 20121124
  3. ASPIRIN [Suspect]
     Indication: PRODUCT USED FOR UNKNOWN INDICATION
     Route: 065
  4. METOPROLOL [Concomitant]
     Dosage: PM
     Route: 048
  5. METOPROLOL [Concomitant]
     Dosage: AM
     Route: 048
  6. DILTIAZEM ER [Concomitant]
     Route: 048
  7. SIMVASTATIN [Concomitant]
     Route: 048
  8. LOSARTAN [Concomitant]
     Route: 048
  9. PAROXETINE [Concomitant]
     Route: 048
  10. VITAMIN D [Concomitant]
     Dosage: 50,000 UNITS QUARTERLY 2 WEEKS
     Route: 048

REACTIONS (2)
  - Haemorrhage [Unknown]
  - Haematoma [Recovering/Resolving]
